FAERS Safety Report 9275145 (Version 1)
Quarter: 2013Q2

REPORT INFORMATION
  Report Type: Spontaneous
  Country: US (occurrence: US)
  Receive Date: 20130507
  Receipt Date: 20130507
  Transmission Date: 20140414
  Serious: Yes (Other)
  Sender: FDA-Public Use
  Company Number: US-PFIZER INC-2013137704

PATIENT
  Age: 56 Year
  Sex: Female
  Weight: 72.56 kg

DRUGS (2)
  1. CORTEF [Suspect]
     Indication: ADRENAL INSUFFICIENCY
     Dosage: 10MG IN THE MORNING + 5MG IN THE EVENING
     Route: 048
     Dates: start: 201210, end: 201301
  2. CORTEF [Suspect]
     Dosage: 20MG IN MORNING + 10MG IN THE EVENING
     Route: 048
     Dates: start: 201301, end: 20130426

REACTIONS (7)
  - Spinal disorder [Unknown]
  - Weight decreased [Unknown]
  - Decreased appetite [Unknown]
  - Activities of daily living impaired [Unknown]
  - Tendon disorder [Unknown]
  - Laceration [Unknown]
  - Drug ineffective [Unknown]
